FAERS Safety Report 23455518 (Version 2)
Quarter: 2025Q1

REPORT INFORMATION
  Report Type: Spontaneous
  Country: US (occurrence: US)
  Receive Date: 20240130
  Receipt Date: 20250210
  Transmission Date: 20250408
  Serious: No
  Sender: SANOFI AVENTIS
  Company Number: US-SA-SAC20240123000384

PATIENT
  Age: 21 Year
  Sex: Female
  Weight: 52 kg

DRUGS (13)
  1. DUPIXENT [Suspect]
     Active Substance: DUPILUMAB
     Indication: Dermatitis atopic
     Dosage: 300 MG, QOW
     Route: 058
  2. DUPIXENT [Suspect]
     Active Substance: DUPILUMAB
     Dosage: 300 MG, QW
     Route: 058
     Dates: start: 202411
  3. EPINEPHRINE [Concomitant]
     Active Substance: EPINEPHRINE
  4. HYOSCYAMINE SULFATE [Concomitant]
     Active Substance: HYOSCYAMINE SULFATE
  5. GABAPENTIN [Concomitant]
     Active Substance: GABAPENTIN
  6. DOXYCYCLINE HYCLATE [Concomitant]
     Active Substance: DOXYCYCLINE HYCLATE
  7. LEVOCETIRIZINE DIHYDROCHLORIDE [Concomitant]
     Active Substance: LEVOCETIRIZINE DIHYDROCHLORIDE
  8. MEXILETINE HCL [Concomitant]
     Active Substance: MEXILETINE HYDROCHLORIDE
  9. FAMOTIDINE [Concomitant]
     Active Substance: FAMOTIDINE
  10. APRI [Concomitant]
     Active Substance: DESOGESTREL\ETHINYL ESTRADIOL
  11. OFLOXACIN [Concomitant]
     Active Substance: OFLOXACIN
  12. HYDROXYZINE HYDROCHLORIDE [Concomitant]
     Active Substance: HYDROXYZINE HYDROCHLORIDE
  13. SINGULAIR [Concomitant]
     Active Substance: MONTELUKAST SODIUM

REACTIONS (10)
  - Eczema [Not Recovered/Not Resolved]
  - Skin haemorrhage [Not Recovered/Not Resolved]
  - Dry skin [Not Recovered/Not Resolved]
  - Skin exfoliation [Not Recovered/Not Resolved]
  - Urticaria [Not Recovered/Not Resolved]
  - Skin irritation [Not Recovered/Not Resolved]
  - Skin fissures [Not Recovered/Not Resolved]
  - Pruritus [Not Recovered/Not Resolved]
  - Therapeutic response unexpected [Unknown]
  - Intentional product misuse [Unknown]

NARRATIVE: CASE EVENT DATE: 20231201
